FAERS Safety Report 17956812 (Version 2)
Quarter: 2021Q2

REPORT INFORMATION
  Report Type: Spontaneous
  Country: US (occurrence: US)
  Receive Date: 20200629
  Receipt Date: 20210513
  Transmission Date: 20210717
  Serious: Yes (Death, Other)
  Sender: FDA-Public Use
  Company Number: US-SA-2020SA164835

PATIENT
  Age: 47 Year
  Sex: Female

DRUGS (1)
  1. ZANTAC [Suspect]
     Active Substance: RANITIDINE HYDROCHLORIDE
     Indication: DYSPEPSIA
     Dosage: 150 MG, QD
     Route: 065
     Dates: start: 198901, end: 200801

REACTIONS (5)
  - Colorectal cancer [Fatal]
  - Gallbladder cancer stage IV [Unknown]
  - Pancreatic carcinoma [Unknown]
  - Colorectal cancer stage IV [Unknown]
  - Hepatobiliary cancer [Unknown]

NARRATIVE: CASE EVENT DATE: 200605
